FAERS Safety Report 6418667-5 (Version None)
Quarter: 2009Q4

REPORT INFORMATION
  Report Type: 
  Country: None (occurrence: None)
  Receive Date: 20091026
  Receipt Date: 20091013
  Transmission Date: 20100525
  Serious: Yes (Life-Threatening, Hospitalization, Disabling)
  Sender: FDA-Public Use
  Company Number: ADR39502009

PATIENT
  Age: 83 Year
  Sex: Female

DRUGS (10)
  1. SIMVASTATIN [Suspect]
     Indication: BLOOD CHOLESTEROL INCREASED
     Dosage: 20 MG ORAL
     Route: 048
     Dates: end: 20090917
  2. AMIODARONE HYDOCHLORIDE [Concomitant]
  3. CO-CODAMOL [Concomitant]
  4. FELODIPINE [Concomitant]
  5. FLUTICASONE PROPIONATE [Concomitant]
  6. IMIPRAMINE HYDROCHLORIDE [Concomitant]
  7. OMEPRAZOLE [Concomitant]
  8. ALBUTEROL [Concomitant]
  9. VALSARTAN [Concomitant]
  10. ZOPICLONE [Concomitant]

REACTIONS (2)
  - MALAISE [None]
  - PULMONARY FIBROSIS [None]
